FAERS Safety Report 21917191 (Version 2)
Quarter: 2023Q1

REPORT INFORMATION
  Report Type: Spontaneous
  Country: NZ (occurrence: NZ)
  Receive Date: 20230126
  Receipt Date: 20230209
  Transmission Date: 20230417
  Serious: Yes (Hospitalization)
  Sender: FDA-Public Use
  Company Number: NZ-CHEPLA-2023001023

PATIENT
  Age: 60 Year
  Sex: Female

DRUGS (9)
  1. LOCOID [Suspect]
     Active Substance: HYDROCORTISONE BUTYRATE
     Indication: Acute generalised exanthematous pustulosis
     Route: 065
  2. PFIZER-BIONTECH COVID-19 VACCINE [Suspect]
     Active Substance: TOZINAMERAN
     Indication: Product used for unknown indication
     Dosage: MRNA BNT162B2 (PFIZER-BIONTECH)/COVID-19 MRNA VACCINE BIONTECH
     Route: 065
  3. PREDNISONE [Suspect]
     Active Substance: PREDNISONE
     Indication: Product used for unknown indication
     Dosage: 40 MG MORNING (0.5 MG/KG)
     Route: 061
  4. PREDNISONE [Suspect]
     Active Substance: PREDNISONE
     Dosage: 60 MG MORNING (0.75 MG/KG)
     Route: 061
  5. CHLORTHALIDONE [Concomitant]
     Active Substance: CHLORTHALIDONE
     Indication: Product used for unknown indication
  6. LOSARTAN [Concomitant]
     Active Substance: LOSARTAN
     Indication: Product used for unknown indication
  7. ATORVASTATIN [Concomitant]
     Active Substance: ATORVASTATIN
     Indication: Product used for unknown indication
  8. AMLODIPINE [Concomitant]
     Active Substance: AMLODIPINE BESYLATE
     Indication: Product used for unknown indication
  9. PINETARSOL [Concomitant]
     Indication: Product used for unknown indication
     Dosage: FOR BATHING

REACTIONS (2)
  - Pain of skin [Recovered/Resolved]
  - Myalgia [Recovered/Resolved]
